FAERS Safety Report 21248014 (Version 1)
Quarter: 2022Q3

REPORT INFORMATION
  Report Type: Spontaneous
  Country: US (occurrence: US)
  Receive Date: 20220824
  Receipt Date: 20220824
  Transmission Date: 20221027
  Serious: No
  Sender: FDA-Public Use
  Company Number: US-PFIZER INC-202201074599

PATIENT
  Age: 53 Year
  Sex: Female

DRUGS (3)
  1. PAXLOVID [Suspect]
     Active Substance: NIRMATRELVIR\RITONAVIR
     Indication: COVID-19 treatment
     Dosage: UNK
     Dates: start: 20220809, end: 20220814
  2. NABUMETONE [Concomitant]
     Active Substance: NABUMETONE
     Dosage: 750 MG, 2X/DAY
     Dates: start: 20220725, end: 20220808
  3. GUAIFENESIN [Concomitant]
     Active Substance: GUAIFENESIN
     Dosage: 600 MG, 2X/DAY,EXTENDED RELEASE
     Dates: start: 20220808, end: 20220814

REACTIONS (2)
  - COVID-19 [Recovering/Resolving]
  - Disease recurrence [Recovering/Resolving]

NARRATIVE: CASE EVENT DATE: 20220819
